FAERS Safety Report 5380925-3 (Version None)
Quarter: 2007Q3

REPORT INFORMATION
  Report Type: 
  Country: None (occurrence: None)
  Receive Date: 20070706
  Receipt Date: 20070625
  Transmission Date: 20080115
  Serious: Yes (Hospitalization)
  Sender: FDA-Public Use
  Company Number: US-ELI_LILLY_AND_COMPANY-US200705006665

PATIENT
  Age: 69 Year
  Sex: Female

DRUGS (13)
  1. BYETTA [Suspect]
     Indication: TYPE 2 DIABETES MELLITUS
     Dosage: 5 UG, 2/D
     Route: 058
     Dates: start: 20070116, end: 20070130
  2. BYETTA [Suspect]
     Dosage: 10 UG, 2/D
     Route: 058
     Dates: start: 20070130, end: 20070415
  3. BYETTA [Suspect]
     Dosage: 5 UG, 2/D
     Route: 058
     Dates: start: 20070101, end: 20070101
  4. AMARYL [Concomitant]
     Dosage: 8 MG, DAILY (1/D)
     Route: 048
     Dates: end: 20070101
  5. AMARYL [Concomitant]
     Dosage: 4 MG, DAILY (1/D)
     Route: 048
     Dates: start: 20070101, end: 20070101
  6. AMARYL [Concomitant]
     Dosage: 2 MG, DAILY (1/D)
     Route: 048
     Dates: start: 20070101
  7. LANTUS [Concomitant]
     Indication: DIABETES MELLITUS
     Dosage: 20 U, UNKNOWN
     Route: 058
  8. LANTUS [Concomitant]
     Dosage: 15 U, 2/D
     Route: 058
     Dates: end: 20070101
  9. LANTUS [Concomitant]
     Dosage: 25 U, 2/D
     Route: 058
     Dates: start: 20070101
  10. CARDIZEM [Concomitant]
     Indication: BLOOD PRESSURE
     Dosage: 240 MG, DAILY (1/D)
     Route: 048
  11. LEVOTHYROXINE SODIUM [Concomitant]
     Dosage: 12.5 MG, DAILY (1/D)
     Route: 065
  12. ALPRAZOLAM [Concomitant]
     Dosage: UNK, UNKNOWN
     Route: 065
  13. CARISOPRODOL [Concomitant]
     Dosage: UNK, UNKNOWN
     Route: 065

REACTIONS (15)
  - ASTHENIA [None]
  - BLOOD GLUCOSE DECREASED [None]
  - BLOOD PRESSURE INCREASED [None]
  - CHEST DISCOMFORT [None]
  - DIZZINESS [None]
  - ERYTHEMA [None]
  - FATIGUE [None]
  - FEELING ABNORMAL [None]
  - FEELING HOT [None]
  - HEART RATE INCREASED [None]
  - HYPOXIA [None]
  - PALPITATIONS [None]
  - PARAESTHESIA [None]
  - PRESYNCOPE [None]
  - TREMOR [None]
